FAERS Safety Report 16031187 (Version 1)
Quarter: 2019Q1

REPORT INFORMATION
  Report Type: Spontaneous
  Country: GB (occurrence: GB)
  Receive Date: 20190304
  Receipt Date: 20190304
  Transmission Date: 20190418
  Serious: Yes (Other)
  Sender: FDA-Public Use
  Company Number: GB-TEVA-2019-GB-1017143

PATIENT
  Sex: Male

DRUGS (7)
  1. ESCITALOPRAM [Suspect]
     Active Substance: ESCITALOPRAM OXALATE
     Dosage: 10 MILLIGRAM DAILY; MORNING
  2. MIRTAZAPINE. [Suspect]
     Active Substance: MIRTAZAPINE
     Dosage: 30 MILLIGRAM DAILY; NIGHT
  3. AZATHIOPRINE. [Suspect]
     Active Substance: AZATHIOPRINE
     Indication: COLITIS
     Dosage: 75 MILLIGRAM DAILY; WITH OR JUST AFTER FOOD
  4. DIHYDROCODEINE [Suspect]
     Active Substance: DIHYDROCODEINE
     Indication: PAIN
     Dosage: TWO TO BE TAKEN FOUR TIMES A DAY IF REQUIRED.
  5. FOLIC ACID. [Suspect]
     Active Substance: FOLIC ACID
     Indication: FOLATE DEFICIENCY
     Dosage: 5 MILLIGRAM DAILY; MORNING
  6. FERROUS FUMARATE [Suspect]
     Active Substance: FERROUS FUMARATE
     Indication: ANAEMIA
     Dosage: 420 MILLIGRAM DAILY; MORNING AND NIGHT
  7. OLANZAPINE. [Suspect]
     Active Substance: OLANZAPINE
     Dosage: 5 MILLIGRAM DAILY;

REACTIONS (1)
  - Seizure [Unknown]
